FAERS Safety Report 23280268 (Version 5)
Quarter: 2024Q1

REPORT INFORMATION
  Report Type: Spontaneous
  Country: DE (occurrence: DE)
  Receive Date: 20231210
  Receipt Date: 20240229
  Transmission Date: 20240410
  Serious: Yes (Hospitalization)
  Sender: FDA-Public Use
  Company Number: DE-BRISTOL-MYERS SQUIBB COMPANY-2023-070874

PATIENT
  Sex: Female
  Weight: 59 kg

DRUGS (11)
  1. ELIQUIS [Suspect]
     Active Substance: APIXABAN
     Indication: Prophylaxis
     Dosage: FREQUENCY: DAILY
     Route: 048
     Dates: end: 20231122
  2. BRAFTOVI [Suspect]
     Active Substance: ENCORAFENIB
     Indication: Colorectal cancer
     Route: 048
     Dates: start: 20230424
  3. BRAFTOVI [Suspect]
     Active Substance: ENCORAFENIB
     Dosage: 300 MG/ DAY
     Route: 048
  4. CETUXIMAB [Suspect]
     Active Substance: CETUXIMAB
     Indication: Colorectal cancer
     Dosage: PHARMACEUTICAL FORM (DOSAGE FORM): LIQUID DILUTION.
     Route: 042
     Dates: start: 20230424, end: 20231030
  5. ENCORAFENIB [Suspect]
     Active Substance: ENCORAFENIB
     Indication: Colorectal cancer
     Dosage: FREQUENCY: PER DAY
     Route: 048
     Dates: start: 20230424
  6. ENCORAFENIB [Suspect]
     Active Substance: ENCORAFENIB
     Route: 048
     Dates: start: 20230506, end: 20231030
  7. CANDESARTAN CILEXETIL [Concomitant]
     Active Substance: CANDESARTAN CILEXETIL
     Indication: Hypertension
     Dosage: FREQUENCY: DAILY
     Route: 048
     Dates: start: 20221209, end: 20231122
  8. AMLODIPINE MALEATE [Concomitant]
     Active Substance: AMLODIPINE MALEATE
     Indication: Hypertension
     Dosage: FREQUENCY: DAILY
     Route: 048
     Dates: start: 20221209, end: 20231122
  9. DOMPERIDON BETA [Concomitant]
     Indication: Prophylaxis
     Route: 048
     Dates: start: 20230504, end: 20230515
  10. METAMIZOLE [Concomitant]
     Active Substance: METAMIZOLE
     Indication: Prophylaxis
     Dosage: FREQUENCY: PRN
     Route: 048
     Dates: end: 20231122
  11. MINOCYCLINE HYDROCHLORIDE [Concomitant]
     Active Substance: MINOCYCLINE HYDROCHLORIDE
     Indication: Prophylaxis
     Dosage: FREQUENCY: DAILY
     Route: 048
     Dates: start: 20230424, end: 20231122

REACTIONS (2)
  - Gastritis [Recovering/Resolving]
  - Prescribed overdose [Unknown]

NARRATIVE: CASE EVENT DATE: 20230502
